FAERS Safety Report 4595765-2 (Version None)
Quarter: 2005Q1

REPORT INFORMATION
  Report Type: 
  Country: None (occurrence: None)
  Receive Date: 20050224
  Receipt Date: 20050224
  Transmission Date: 20050727
  Serious: Yes (Life-Threatening, Hospitalization, Disabling)
  Sender: FDA-Public Use
  Company Number: None

PATIENT
  Age: 41 Year
  Sex: Male
  Weight: 113.3993 kg

DRUGS (10)
  1. VOLTAREN-XR [Suspect]
     Indication: ARTHRITIS
     Dosage: 1 DAILY ORAL
     Route: 048
     Dates: start: 19900701, end: 20040719
  2. VOLTAREN-XR [Suspect]
     Indication: INFLAMMATION
     Dosage: 1 DAILY ORAL
     Route: 048
     Dates: start: 19900701, end: 20040719
  3. VOLTAREN-XR [Suspect]
     Indication: PAIN
     Dosage: 1 DAILY ORAL
     Route: 048
     Dates: start: 19900701, end: 20040719
  4. VIOXX [Suspect]
     Indication: ARTHRITIS
     Dosage: 1 DAILY ORAL
     Route: 048
     Dates: start: 19980101, end: 19980329
  5. VIOXX [Suspect]
     Indication: INFLAMMATION
     Dosage: 1 DAILY ORAL
     Route: 048
     Dates: start: 19980101, end: 19980329
  6. VIOXX [Suspect]
     Indication: PAIN
     Dosage: 1 DAILY ORAL
     Route: 048
     Dates: start: 19980101, end: 19980329
  7. CELEBREX [Suspect]
     Indication: ARTHRITIS
     Dosage: 1 DAILY ORAL
     Route: 048
     Dates: start: 19980101, end: 19980329
  8. CELEBREX [Suspect]
     Indication: INFLAMMATION
     Dosage: 1 DAILY ORAL
     Route: 048
     Dates: start: 19980101, end: 19980329
  9. CELEBREX [Suspect]
     Indication: PAIN
     Dosage: 1 DAILY ORAL
     Route: 048
     Dates: start: 19980101, end: 19980329
  10. ASPIRIN [Concomitant]

REACTIONS (7)
  - CIRCULATORY COLLAPSE [None]
  - GASTRIC ULCER [None]
  - INCISION SITE COMPLICATION [None]
  - INCOHERENT [None]
  - MYOCARDIAL INFARCTION [None]
  - OPEN WOUND [None]
  - SURGERY [None]
